FAERS Safety Report 17072898 (Version 3)
Quarter: 2019Q4

REPORT INFORMATION
  Report Type: Report from Study
  Country: CA (occurrence: CA)
  Receive Date: 20191125
  Receipt Date: 20191220
  Transmission Date: 20200122
  Serious: Yes (Other)
  Sender: FDA-Public Use
  Company Number: CA-JNJFOC-20191129534

PATIENT
  Sex: Male
  Weight: 90.5 kg

DRUGS (1)
  1. STELARA [Suspect]
     Active Substance: USTEKINUMAB
     Indication: PSORIASIS
     Route: 058
     Dates: start: 20181118

REACTIONS (3)
  - Infection [Recovered/Resolved]
  - Ear neoplasm [Recovering/Resolving]
  - Psoriasis [Unknown]
